FAERS Safety Report 6220704-8 (Version None)
Quarter: 2009Q2

REPORT INFORMATION
  Report Type: 
  Country: None (occurrence: None)
  Receive Date: 20090610
  Receipt Date: 20090527
  Transmission Date: 20091009
  Serious: Yes (Hospitalization)
  Sender: FDA-Public Use
  Company Number: SI-SOLVAY-00309002210

PATIENT
  Age: 16044 Day
  Sex: Male

DRUGS (1)
  1. ANDROTOP 50 [Suspect]
     Indication: HYPOGONADISM
     Dosage: DAILY DOSE: 50 MILLIGRAM(S)
     Route: 062
     Dates: start: 20081202

REACTIONS (1)
  - ATRIAL FIBRILLATION [None]
